FAERS Safety Report 8333745-1 (Version None)
Quarter: 2012Q2

REPORT INFORMATION
  Report Type: 
  Country: None (occurrence: None)
  Receive Date: 20120503
  Receipt Date: 20120503
  Transmission Date: 20120825
  Serious: Yes (Life-Threatening, Hospitalization)
  Sender: FDA-Public Use
  Company Number: None

PATIENT
  Age: 72 Year
  Sex: Male
  Weight: 112.49 kg

DRUGS (4)
  1. ACTOS [Concomitant]
     Route: 048
  2. CIPROFLOXACIN [Suspect]
     Indication: URINARY TRACT INFECTION
     Dosage: |DOSAGETEXT: ONE TABLET||STRENGTH: 500 MG||FREQ: TWICE DAILY||ROUTE: ORAL|
     Route: 048
     Dates: start: 20120418, end: 20120425
  3. METFORMIN HCL [Concomitant]
     Route: 048
  4. GLIMEPIRIDE [Concomitant]
     Route: 048

REACTIONS (4)
  - APHASIA [None]
  - DRUG INTERACTION [None]
  - FALL [None]
  - BLOOD GLUCOSE DECREASED [None]
